FAERS Safety Report 24303083 (Version 6)
Quarter: 2025Q2

REPORT INFORMATION
  Report Type: Report from Study
  Country: US (occurrence: US)
  Receive Date: 20240910
  Receipt Date: 20250618
  Transmission Date: 20250717
  Serious: Yes (Hospitalization)
  Sender: SUNOVION
  Company Number: US-SUMITOMO PHARMA SWITZERLAND GMBH-2024SPA001355

PATIENT

DRUGS (4)
  1. ORGOVYX [Suspect]
     Active Substance: RELUGOLIX
     Indication: Prostate cancer
     Route: 048
     Dates: start: 20240728, end: 20240728
  2. ORGOVYX [Suspect]
     Active Substance: RELUGOLIX
     Dosage: 120 MG, QD
     Route: 048
     Dates: start: 20240729
  3. ZYRTEC [Concomitant]
     Active Substance: CETIRIZINE HYDROCHLORIDE
     Indication: Product used for unknown indication
     Route: 065
  4. NASONEX [Concomitant]
     Active Substance: MOMETASONE FUROATE
     Indication: Product used for unknown indication
     Route: 065

REACTIONS (14)
  - Heart valve replacement [Unknown]
  - Ear discomfort [Unknown]
  - Sinusitis [Unknown]
  - Flatulence [Unknown]
  - Eructation [Unknown]
  - Bowel movement irregularity [Unknown]
  - Micturition disorder [Unknown]
  - Hypersensitivity [Unknown]
  - Night sweats [Unknown]
  - Insomnia [Unknown]
  - Hyperhidrosis [Unknown]
  - Asthenia [Unknown]
  - Loss of libido [Unknown]
  - Product dose omission issue [Unknown]

NARRATIVE: CASE EVENT DATE: 20240101
